FAERS Safety Report 17765732 (Version 1)
Quarter: 2020Q2

REPORT INFORMATION
  Report Type: Spontaneous
  Country: SI (occurrence: SI)
  Receive Date: 20200511
  Receipt Date: 20200511
  Transmission Date: 20200714
  Serious: Yes (Other)
  Sender: FDA-Public Use
  Company Number: SI-PFIZER INC-2020185753

PATIENT
  Age: 50 Year
  Sex: Male

DRUGS (7)
  1. PANTOPRAZOL TEVA [Concomitant]
     Active Substance: PANTOPRAZOLE SODIUM
     Indication: GASTRITIS
     Dosage: 20 MG; 20 MG/DAY
     Route: 048
     Dates: start: 20200412, end: 20200421
  2. FRAGMIN [Suspect]
     Active Substance: DALTEPARIN SODIUM
     Indication: THROMBOSIS PROPHYLAXIS
     Dosage: 5000 IU / 24 HOURS
     Route: 058
     Dates: start: 20200412, end: 20200422
  3. HYDROXYCHLOROQUINE SULPHATE [Suspect]
     Active Substance: HYDROXYCHLOROQUINE
     Dosage: 400 MG IN THE EVENING
     Route: 048
     Dates: start: 20200415, end: 20200415
  4. DALERON [Suspect]
     Active Substance: ACETAMINOPHEN
     Indication: PYREXIA
     Dosage: 500 MG; AS NECESSARY, TOTAL DOSE OF 2 TBL ON 14APR AND 15APR
     Route: 048
     Dates: start: 20200414, end: 20200415
  5. HYDROXYCHLOROQUINE SULPHATE [Suspect]
     Active Substance: HYDROXYCHLOROQUINE
     Indication: CORONAVIRUS INFECTION
     Dosage: ON 15APR IN THE EVENING AND ON 16APR IN THE MORNING WITH DOSE OF 400 MG, THEN 200 MG/12 H
     Route: 048
     Dates: start: 20200415, end: 20200418
  6. HYDROXYCHLOROQUINE SULPHATE [Suspect]
     Active Substance: HYDROXYCHLOROQUINE
     Dosage: 400 MG IN THE MORNING
     Route: 048
     Dates: start: 20200416, end: 20200416
  7. FOLKODIN ALKALOID [Concomitant]
     Indication: COUGH
     Dosage: 10 MG; AS NECESSARY 2CAPS/DAY
     Route: 048
     Dates: start: 20200412, end: 20200420

REACTIONS (1)
  - Liver disorder [Recovering/Resolving]

NARRATIVE: CASE EVENT DATE: 20200414
